FAERS Safety Report 12880423 (Version 1)
Quarter: 2016Q4

REPORT INFORMATION
  Report Type: Spontaneous
  Country: US (occurrence: US)
  Receive Date: 20161021
  Receipt Date: 20161021
  Transmission Date: 20170207
  Serious: No
  Sender: FDA-Public Use
  Company Number: None

PATIENT
  Age: 9 Year
  Sex: Female

DRUGS (1)
  1. INCRELEX [Suspect]
     Active Substance: MECASERMIN
     Indication: CYTOGENETIC ABNORMALITY
     Dosage: 40/4 ML   0.17ML TICE A DAY
     Route: 058
     Dates: start: 20160915

REACTIONS (2)
  - Dysuria [None]
  - Adnexa uteri pain [None]

NARRATIVE: CASE EVENT DATE: 20161009
